FAERS Safety Report 12409197 (Version 5)
Quarter: 2016Q3

REPORT INFORMATION
  Report Type: Spontaneous
  Country: US (occurrence: US)
  Receive Date: 20160526
  Receipt Date: 20160810
  Transmission Date: 20161109
  Serious: No
  Sender: FDA-Public Use
  Company Number: US-ACTELION-A-US2016-136717

PATIENT
  Age: 78 Year
  Sex: Male
  Weight: 68.27 kg

DRUGS (7)
  1. UPTRAVI [Suspect]
     Active Substance: SELEXIPAG
     Dosage: 200 MCG, BID
     Route: 048
     Dates: start: 20160427
  2. UPTRAVI [Suspect]
     Active Substance: SELEXIPAG
     Dosage: 1000 MG, BID
     Route: 048
  3. UPTRAVI [Suspect]
     Active Substance: SELEXIPAG
     Dosage: 800 MG, BID
     Route: 048
     Dates: end: 20160522
  4. SILDENAFIL. [Concomitant]
     Active Substance: SILDENAFIL
  5. FLOMAX [Concomitant]
     Active Substance: TAMSULOSIN HYDROCHLORIDE
  6. UPTRAVI [Suspect]
     Active Substance: SELEXIPAG
     Indication: PULMONARY ARTERIAL HYPERTENSION
     Dosage: 600 MG, BID
     Route: 048
  7. UPTRAVI [Suspect]
     Active Substance: SELEXIPAG
     Dosage: 1600 MCG, BID
     Route: 048

REACTIONS (18)
  - Nausea [Unknown]
  - Back pain [Unknown]
  - Tooth fracture [Unknown]
  - Headache [Unknown]
  - Arthropod bite [Unknown]
  - Diarrhoea [Unknown]
  - Rash [Unknown]
  - Decreased appetite [Unknown]
  - Dizziness [Unknown]
  - Flushing [Unknown]
  - Abdominal pain lower [Unknown]
  - Lethargy [Unknown]
  - Dysgeusia [Unknown]
  - Pain in jaw [Unknown]
  - Pollakiuria [Unknown]
  - Fall [Unknown]
  - Frequent bowel movements [Unknown]
  - Therapy non-responder [Unknown]

NARRATIVE: CASE EVENT DATE: 201605
